FAERS Safety Report 5467372-0 (Version None)
Quarter: 2007Q3

REPORT INFORMATION
  Report Type: 
  Country: None (occurrence: None)
  Receive Date: 20070925
  Receipt Date: 20070913
  Transmission Date: 20080115
  Serious: Yes (Other)
  Sender: FDA-Public Use
  Company Number: ES-PFIZER INC-2007053842

PATIENT
  Sex: Female

DRUGS (5)
  1. CHAMPIX [Suspect]
     Indication: SMOKING CESSATION THERAPY
     Route: 048
  2. ANAFRANIL [Concomitant]
     Route: 048
  3. PRAVASTATIN [Concomitant]
     Route: 048
  4. ANTIHYPERTENSIVES [Concomitant]
  5. DIOVAN HCT [Concomitant]
     Route: 048

REACTIONS (1)
  - DELUSIONAL DISORDER, PERSECUTORY TYPE [None]
